FAERS Safety Report 15641594 (Version 1)
Quarter: 2018Q4

REPORT INFORMATION
  Report Type: Spontaneous
  Country: DK (occurrence: DK)
  Receive Date: 20181120
  Receipt Date: 20181120
  Transmission Date: 20190205
  Serious: Yes (Hospitalization, Other)
  Sender: FDA-Public Use
  Company Number: DK-BRISTOL-MYERS SQUIBB COMPANY-BMS-2018-107315

PATIENT
  Age: 58 Year
  Sex: Female

DRUGS (1)
  1. SPRYCEL [Suspect]
     Active Substance: DASATINIB
     Indication: CHRONIC MYELOID LEUKAEMIA
     Dosage: 70 MG, PER DAY
     Route: 048
     Dates: start: 20140402

REACTIONS (14)
  - Muscular weakness [Not Recovered/Not Resolved]
  - Musculoskeletal pain [Unknown]
  - Aphasia [Unknown]
  - Vomiting [Unknown]
  - Headache [Recovered/Resolved]
  - Cyanosis [Recovered/Resolved]
  - Peripheral coldness [Recovered/Resolved]
  - Ataxia [Recovered/Resolved]
  - Palpitations [Recovered/Resolved]
  - Chest discomfort [Recovered/Resolved]
  - Balance disorder [Unknown]
  - Wrong drug [Unknown]
  - Constipation [Unknown]
  - Transient ischaemic attack [Recovered/Resolved with Sequelae]

NARRATIVE: CASE EVENT DATE: 201404
